FAERS Safety Report 12305154 (Version 3)
Quarter: 2016Q2

REPORT INFORMATION
  Report Type: Spontaneous
  Country: US (occurrence: US)
  Receive Date: 20160426
  Receipt Date: 20160506
  Transmission Date: 20160815
  Serious: Yes (Death)
  Sender: FDA-Public Use
  Company Number: US-ALKERMES INC.-ALK-2016-001046

PATIENT
  Sex: Male

DRUGS (4)
  1. LISINOPRIL. [Concomitant]
     Active Substance: LISINOPRIL
     Indication: HYPERTENSION
     Dosage: 1 DF, QOD
     Route: 048
  2. SEROQUEL [Concomitant]
     Active Substance: QUETIAPINE FUMARATE
     Indication: BIPOLAR DISORDER
     Dosage: 1 DF, QOD
     Route: 048
  3. LAMICTAL [Concomitant]
     Active Substance: LAMOTRIGINE
     Indication: BIPOLAR DISORDER
     Dosage: 1 DF, QOD
     Route: 048
  4. VIVITROL [Suspect]
     Active Substance: NALTREXONE
     Indication: DRUG DEPENDENCE
     Dosage: 380 MG, QMO
     Route: 030

REACTIONS (2)
  - Product container issue [Unknown]
  - Overdose [Fatal]
